FAERS Safety Report 5473301-6 (Version None)
Quarter: 2007Q3

REPORT INFORMATION
  Report Type: 
  Country: None (occurrence: None)
  Receive Date: 20070928
  Receipt Date: 20070529
  Transmission Date: 20080115
  Serious: Yes (Other)
  Sender: FDA-Public Use
  Company Number: 2007BH004837

PATIENT
  Age: 81 Year
  Sex: Male
  Weight: 109 kg

DRUGS (13)
  1. VANCOMYCIN HCL [Suspect]
     Indication: ANTIBIOTIC PROPHYLAXIS
     Dosage: 500 MG; IV
     Route: 042
     Dates: start: 20070525, end: 20070525
  2. HYTRIN [Concomitant]
  3. COZAAR [Concomitant]
  4. LASIX [Concomitant]
  5. HYDROCHLOROTHIAZIDE [Concomitant]
  6. PLAVIX [Concomitant]
  7. LISINOPRIL [Concomitant]
  8. ISORDIL [Concomitant]
  9. LOPRESSOR [Concomitant]
  10. CARDIZEM [Concomitant]
  11. PROSCAR [Concomitant]
  12. ZOCOR [Concomitant]
  13. PERCOCET [Concomitant]

REACTIONS (1)
  - HYPERSENSITIVITY [None]
